FAERS Safety Report 18072329 (Version 1)
Quarter: 2020Q3

REPORT INFORMATION
  Report Type: Spontaneous
  Country: CN (occurrence: CN)
  Receive Date: 20200727
  Receipt Date: 20200727
  Transmission Date: 20201103
  Serious: Yes (Hospitalization)
  Sender: FDA-Public Use
  Company Number: CN-ASTRAZENECA-2020SE92849

PATIENT
  Age: 23283 Day
  Sex: Male
  Weight: 60 kg

DRUGS (3)
  1. BRILINTA [Suspect]
     Active Substance: TICAGRELOR
     Indication: ANGINA UNSTABLE
     Route: 048
     Dates: start: 20200405, end: 20200617
  2. CLOPIDOGREL SULFATE [Suspect]
     Active Substance: CLOPIDOGREL BISULFATE
     Indication: ANGINA UNSTABLE
     Route: 048
     Dates: start: 20200626
  3. CLOPIDOGREL SULFATE [Suspect]
     Active Substance: CLOPIDOGREL BISULFATE
     Indication: ANGINA UNSTABLE
     Route: 048
     Dates: start: 20200618, end: 20200623

REACTIONS (6)
  - Chest discomfort [Unknown]
  - Asthenia [Unknown]
  - Dizziness [Unknown]
  - Faeces discoloured [Recovered/Resolved]
  - Gastrointestinal haemorrhage [Recovered/Resolved]
  - Asthma [Unknown]

NARRATIVE: CASE EVENT DATE: 20200623
